FAERS Safety Report 6862078-5 (Version None)
Quarter: 2010Q3

REPORT INFORMATION
  Report Type: 
  Country: None (occurrence: None)
  Receive Date: 20100721
  Receipt Date: 20100712
  Transmission Date: 20110219
  Serious: Yes (Death, Life-Threatening, Other)
  Sender: FDA-Public Use
  Company Number: JP-GENZYME-THYM-1001633

PATIENT
  Sex: Male
  Weight: 35 kg

DRUGS (28)
  1. THYMOGLOBULIN [Suspect]
     Indication: BONE MARROW CONDITIONING REGIMEN
     Dosage: 87.5 MG, QD
     Route: 042
     Dates: start: 20090626, end: 20090629
  2. SOLUTIONS FOR PARENTERAL NUTRITION [Concomitant]
     Indication: NUTRITIONAL SUPPORT
     Dosage: UNK
     Dates: start: 20090624, end: 20090712
  3. SOLUTIONS FOR PARENTERAL NUTRITION [Concomitant]
     Indication: FLUID REPLACEMENT
  4. MULTI-VITAMIN [Concomitant]
     Indication: NUTRITIONAL SUPPORT
     Dosage: UNK
     Dates: start: 20090626, end: 20090712
  5. MANGANESE CHLORIDE [Concomitant]
     Indication: NUTRITIONAL SUPPORT
     Dosage: UNK
     Dates: start: 20090626, end: 20090712
  6. HEPARIN [Concomitant]
     Indication: PROPHYLAXIS
     Dosage: UNK
     Dates: start: 20090626, end: 20090712
  7. CEFOPERAZONE SODIUM [Concomitant]
     Indication: ANTIBIOTIC PROPHYLAXIS
     Dosage: UNK
     Dates: start: 20090623, end: 20090628
  8. RINGER-ACETAT [Concomitant]
     Indication: FLUID REPLACEMENT
     Dosage: UNK
     Dates: start: 20090626, end: 20090629
  9. RAMOSETRON HYDROCHLORIDE [Concomitant]
     Indication: PROPHYLAXIS OF NAUSEA AND VOMITING
     Dosage: UNK
     Dates: start: 20090625, end: 20090629
  10. CYCLOPHOSPHAMIDE [Concomitant]
     Indication: PREMEDICATION
     Dosage: UNK
     Dates: start: 20090626, end: 20090629
  11. METHYLPREDNISOLONE SODIUM SUCCINATE [Concomitant]
     Indication: PREMEDICATION
     Dosage: UNK
     Dates: start: 20090626, end: 20090629
  12. MESNA [Concomitant]
     Indication: HAEMORRHAGE PROPHYLAXIS
     Dosage: UNK
     Dates: start: 20090626, end: 20090629
  13. HYDROXYZINE PAMOATE [Concomitant]
     Indication: PREMEDICATION
     Dosage: UNK
     Dates: start: 20090626, end: 20090629
  14. IMMUNE GLOBULIN NOS [Concomitant]
     Indication: ANTIVIRAL PROPHYLAXIS
     Dosage: UNK
     Dates: start: 20090625, end: 20090625
  15. SODIUM CHLORIDE [Concomitant]
     Indication: HYPONATRAEMIA
     Dosage: UNK
     Dates: start: 20090701, end: 20090702
  16. POTASSIUM MAGNESIUM ASPARTATE [Concomitant]
     Indication: HYPOKALAEMIA
     Dosage: UNK
     Dates: start: 20090701, end: 20090702
  17. HYDROCORTISONE SODIUM SUCCINATE [Concomitant]
     Indication: ANAPHYLAXIS PROPHYLAXIS
     Dosage: UNK
     Dates: start: 20090701, end: 20090701
  18. METHOTREXATE [Concomitant]
     Indication: PROPHYLAXIS AGAINST GRAFT VERSUS HOST DISEASE
     Dosage: UNK
     Dates: start: 20090702, end: 20090707
  19. TACROLIMUS [Concomitant]
     Indication: PROPHYLAXIS AGAINST GRAFT VERSUS HOST DISEASE
     Dosage: UNK
     Dates: start: 20090630, end: 20090710
  20. POTASSIUM CHLORIDE [Concomitant]
     Indication: HYPOKALAEMIA
     Dosage: UNK
     Dates: start: 20090629, end: 20090630
  21. FAMOTIDINE [Concomitant]
     Indication: PEPTIC ULCER
     Dosage: UNK
     Dates: start: 20090630, end: 20090706
  22. GLYCYRRHIZIN GLYCINE CYSTEINE [Concomitant]
     Indication: LIVER DISORDER
     Dosage: UNK
     Dates: start: 20090705, end: 20090711
  23. CARBAZOCHROME SODIUM SULFONATE [Concomitant]
     Indication: GASTRIC HAEMORRHAGE
     Dosage: UNK
     Dates: start: 20090708, end: 20090711
  24. CARBAZOCHROME SODIUM SULFONATE [Concomitant]
     Indication: HAEMATURIA
  25. ALBUMIN (HUMAN) [Concomitant]
     Indication: HYPOPROTEINAEMIA
     Dosage: UNK
     Dates: start: 20090704, end: 20090705
  26. FUROSEMIDE [Concomitant]
     Indication: OLIGURIA
     Dosage: UNK
     Dates: start: 20090704, end: 20090710
  27. FUROSEMIDE [Concomitant]
     Indication: OEDEMA
  28. PENTAMIDINE ISETHIONATE [Concomitant]
     Indication: ANTIFUNGAL PROPHYLAXIS
     Dosage: UNK
     Dates: start: 20090709, end: 20090709

REACTIONS (22)
  - ABDOMINAL PAIN [None]
  - ACUTE RESPIRATORY DISTRESS SYNDROME [None]
  - CARDIAC ARREST [None]
  - CARDIAC FAILURE [None]
  - CHILLS [None]
  - DIARRHOEA [None]
  - DISSEMINATED INTRAVASCULAR COAGULATION [None]
  - ENGRAFTMENT SYNDROME [None]
  - HEADACHE [None]
  - INTERSTITIAL LUNG DISEASE [None]
  - LYMPHOCYTE COUNT DECREASED [None]
  - MULTI-ORGAN FAILURE [None]
  - NEUTROPHIL COUNT DECREASED [None]
  - PLATELET COUNT DECREASED [None]
  - PNEUMONIA [None]
  - PULMONARY OEDEMA [None]
  - PYREXIA [None]
  - SEPSIS [None]
  - THERAPEUTIC AGENT TOXICITY [None]
  - THROMBOTIC MICROANGIOPATHY [None]
  - VOMITING [None]
  - WHITE BLOOD CELL COUNT DECREASED [None]
